FAERS Safety Report 8424252-6 (Version None)
Quarter: 2012Q2

REPORT INFORMATION
  Report Type: 
  Country: None (occurrence: None)
  Receive Date: 20120608
  Receipt Date: 20120103
  Transmission Date: 20120825
  Serious: No
  Sender: FDA-Public Use
  Company Number: US-ASTRAZENECA-2012SE00312

PATIENT
  Sex: Female
  Weight: 77.1 kg

DRUGS (1)
  1. PULMICORT FLEXHALER [Suspect]
     Indication: BRONCHITIS
     Dosage: 2 PUFFS TWICE DAILY
     Route: 055
     Dates: start: 20111231

REACTIONS (1)
  - THROAT TIGHTNESS [None]
